FAERS Safety Report 5489261-8 (Version None)
Quarter: 2007Q4

REPORT INFORMATION
  Report Type: 
  Country: None (occurrence: None)
  Receive Date: 20071018
  Receipt Date: 20070625
  Transmission Date: 20080405
  Serious: Yes (Hospitalization, Other)
  Sender: FDA-Public Use
  Company Number: US-AVENTIS-200717279US

PATIENT
  Sex: Male

DRUGS (4)
  1. LOVENOX [Suspect]
     Dosage: DOSE: UNK
     Dates: start: 20070425
  2. VERSED [Concomitant]
     Route: 042
     Dates: start: 20070425
  3. FENTANYL [Concomitant]
     Route: 042
     Dates: start: 20070425
  4. OMNIPAQUE 350 [Concomitant]
     Dates: start: 20070425

REACTIONS (3)
  - CHEST PAIN [None]
  - DRUG INEFFECTIVE [None]
  - THROMBOSIS [None]
